FAERS Safety Report 26094256 (Version 1)
Quarter: 2025Q4

REPORT INFORMATION
  Report Type: Spontaneous
  Country: CA (occurrence: CA)
  Receive Date: 20251126
  Receipt Date: 20251126
  Transmission Date: 20260117
  Serious: Yes (Other)
  Sender: EISAI
  Company Number: CA-Eisai-EC-2025-200730

PATIENT
  Age: 75 Year
  Sex: Male

DRUGS (1)
  1. DONEPEZIL [Suspect]
     Active Substance: DONEPEZIL
     Indication: Product used for unknown indication

REACTIONS (2)
  - Clonus [Unknown]
  - Condition aggravated [Unknown]
